FAERS Safety Report 8481561-2 (Version None)
Quarter: 2012Q3

REPORT INFORMATION
  Report Type: 
  Country: None (occurrence: None)
  Receive Date: 20120702
  Receipt Date: 20120620
  Transmission Date: 20120928
  Serious: Yes (Other)
  Sender: FDA-Public Use
  Company Number: JP-VERTEX PHARMACEUTICALS INC.-AE-2012-006839

PATIENT
  Age: 50 Year
  Sex: Female

DRUGS (17)
  1. RIBAVIRIN [Concomitant]
     Route: 048
  2. LENDORMIN D [Concomitant]
     Route: 048
  3. NABOL SR [Concomitant]
     Route: 048
  4. RIBAVIRIN [Concomitant]
     Indication: HEPATITIS C
     Route: 048
     Dates: start: 20120314, end: 20120403
  5. PEGINTERFERON ALFA-2B [Concomitant]
     Indication: HEPATITIS C
     Route: 058
     Dates: start: 20120314, end: 20120425
  6. NABOL SR [Concomitant]
     Route: 048
     Dates: start: 20120314
  7. ZOLPIDEM [Concomitant]
     Route: 048
  8. ZOLPIDEM [Concomitant]
     Route: 048
  9. ASPIRIN [Concomitant]
     Route: 048
     Dates: start: 20120319, end: 20120321
  10. TELAVIC (TELAPREVIR) [Suspect]
     Indication: HEPATITIS C
     Route: 048
     Dates: start: 20120314, end: 20120501
  11. PEGINTERFERON ALFA-2B [Concomitant]
     Route: 058
     Dates: start: 20120502
  12. TELAVIC (TELAPREVIR) [Suspect]
     Route: 048
     Dates: start: 20120502, end: 20120605
  13. RIBAVIRIN [Concomitant]
     Route: 048
     Dates: start: 20120404, end: 20120424
  14. ALOSENN [Concomitant]
     Route: 048
  15. ALOSENN [Concomitant]
     Route: 048
  16. FAMOTIDINE [Concomitant]
     Route: 048
     Dates: start: 20120314, end: 20120327
  17. ZADITEN [Concomitant]
     Route: 045
     Dates: start: 20120319, end: 20120326

REACTIONS (2)
  - NEUTROPHIL COUNT DECREASED [None]
  - WHITE BLOOD CELL COUNT DECREASED [None]
